FAERS Safety Report 8963894 (Version 1)
Quarter: 2012Q4

REPORT INFORMATION
  Report Type: 
  Country: US (occurrence: US)
  Receive Date: 20121214
  Receipt Date: 20121214
  Transmission Date: 20130627
  Serious: Yes (Other)
  Sender: FDA-Public Use
  Company Number: US-PFIZER INC-2012312093

PATIENT
  Age: 69 Year
  Sex: Female
  Weight: 81.63 kg

DRUGS (1)
  1. ADVIL [Suspect]
     Indication: JAW PAIN
     Dosage: six to eight tablets of 200 mg, daily
     Route: 048
     Dates: start: 2012, end: 20121209

REACTIONS (3)
  - Overdose [Unknown]
  - Blood pressure increased [Unknown]
  - Abnormal sensation in eye [Unknown]
